FAERS Safety Report 9466505 (Version 2)
Quarter: 2013Q3

REPORT INFORMATION
  Report Type: Report from Study
  Country: US (occurrence: US)
  Receive Date: 20130820
  Receipt Date: 20130820
  Transmission Date: 20140515
  Serious: Yes (Hospitalization)
  Sender: FDA-Public Use
  Company Number: US-ACTELION-A-US2013-85215

PATIENT
  Age: 66 Year
  Sex: Female

DRUGS (17)
  1. TRACLEER [Suspect]
     Indication: PULMONARY ARTERIAL HYPERTENSION
     Dosage: 125 MG, BID
     Route: 048
     Dates: start: 2011
  2. POTASSIUM [Concomitant]
  3. ZANTAC [Concomitant]
     Dosage: 300 MG, BID
  4. REVATIO [Concomitant]
     Dosage: 20 MG, UNK
  5. TIZANIDINE [Concomitant]
     Dosage: 4 MG, UNK
  6. ASPIRIN [Concomitant]
     Dosage: 81 MG, UNK
  7. CALCIUM [Concomitant]
     Dosage: 500 MG, BID
  8. CARBAMAZEPINE [Concomitant]
     Dosage: 200 MG, UNK
  9. NEURONTIN [Concomitant]
     Dosage: 600 MG, UNK
  10. LOSARTAN [Concomitant]
     Dosage: 50 MG, UNK
  11. SINGULAIR [Concomitant]
     Dosage: 10 MG, UNK
  12. TAMSULOSIN [Concomitant]
     Dosage: 0.4 MG, UNK
  13. LEVOTHYROXINE [Concomitant]
     Dosage: 0.175 UNK, UNK
  14. LASIX [Concomitant]
     Dosage: 20 MG, UNK
  15. NAPROSYN [Concomitant]
     Dosage: 250 MG, UNK
  16. FLUTICASONE [Concomitant]
     Dosage: 50 MG, UNK
  17. QVAR [Concomitant]
     Dosage: 1 PUFF, UNK

REACTIONS (3)
  - Loss of consciousness [Recovering/Resolving]
  - Cardiac failure congestive [Recovering/Resolving]
  - Sinusitis [Unknown]
